FAERS Safety Report 8186845-3 (Version None)
Quarter: 2012Q1

REPORT INFORMATION
  Report Type: 
  Country: None (occurrence: None)
  Receive Date: 20120301
  Receipt Date: 20120221
  Transmission Date: 20120608
  Serious: Yes (Hospitalization)
  Sender: FDA-Public Use
  Company Number: 2011SP056347

PATIENT
  Age: 27 Year
  Sex: Female

DRUGS (3)
  1. PUREGON (FOLLITROPIN BETA /01348901/) [Suspect]
     Indication: OVULATION INDUCTION
     Dosage: 900 IU;QD;SC
     Route: 058
     Dates: start: 20110906, end: 20110911
  2. CHORIONIC GONADOTROPIN [Suspect]
     Indication: PRODUCT USED FOR UNKNOWN INDICATION
     Dosage: 1 DF;ONCE;SC
     Route: 057
     Dates: start: 20110912, end: 20110912
  3. GANIRELIX ACETATE INJECTION [Suspect]
     Indication: OVULATION INDUCTION
     Dosage: 1 DF;QD;SC
     Route: 058
     Dates: start: 20110908, end: 20110911

REACTIONS (4)
  - VOMITING [None]
  - OVARIAN HAEMATOMA [None]
  - EFFUSION [None]
  - ABDOMINAL PAIN [None]
